FAERS Safety Report 17038244 (Version 2)
Quarter: 2019Q4

REPORT INFORMATION
  Report Type: Spontaneous
  Country: US (occurrence: US)
  Receive Date: 20191115
  Receipt Date: 20191121
  Transmission Date: 20200122
  Serious: Yes (Other)
  Sender: FDA-Public Use
  Company Number: US-TEVA-2019-US-1135409

PATIENT
  Age: 15 Year
  Sex: Male

DRUGS (2)
  1. CLARAVIS [Suspect]
     Active Substance: ISOTRETINOIN
     Route: 065
     Dates: start: 2019
  2. CLARAVIS [Suspect]
     Active Substance: ISOTRETINOIN
     Dosage: DOSE INCREASED TO 80 MG ON 27-AUG-2019
     Route: 065
     Dates: start: 201907

REACTIONS (6)
  - Anxiety [Unknown]
  - Abdominal discomfort [Unknown]
  - Weight decreased [Unknown]
  - Intentional self-injury [Unknown]
  - Retching [Unknown]
  - Depression [Unknown]

NARRATIVE: CASE EVENT DATE: 201906
